FAERS Safety Report 6259734-9 (Version None)
Quarter: 2009Q3

REPORT INFORMATION
  Report Type: 
  Country: None (occurrence: None)
  Receive Date: 20090708
  Receipt Date: 20090625
  Transmission Date: 20100115
  Serious: Yes (Hospitalization)
  Sender: FDA-Public Use
  Company Number: US-AVENTIS-200915471GDDC

PATIENT
  Age: 74 Year
  Sex: Male
  Weight: 59 kg

DRUGS (17)
  1. PLACEBO [Suspect]
     Indication: NON-SMALL CELL LUNG CANCER
     Route: 042
     Dates: start: 20090519, end: 20090519
  2. DOCETAXEL [Suspect]
     Indication: NON-SMALL CELL LUNG CANCER
     Route: 042
     Dates: start: 20090519, end: 20090519
  3. PROSCAR [Concomitant]
     Dates: start: 19950101
  4. HYTRIN [Concomitant]
     Dates: start: 19940101
  5. LIPITOR [Concomitant]
     Dates: start: 19970101
  6. NEULASTA [Concomitant]
     Dates: start: 20081009
  7. IMDUR [Concomitant]
     Dates: start: 20060101
  8. METOPROLOL TARTRATE [Concomitant]
     Dates: start: 20060101
  9. KLONOPIN [Concomitant]
     Dates: start: 20060101
  10. NITROGLYCERIN [Concomitant]
     Dates: start: 19971001
  11. CORTICOSTEROIDS [Concomitant]
  12. MULTI-VITAMINS [Concomitant]
     Dates: start: 20081124
  13. ASPIRIN [Concomitant]
     Dates: start: 20081124
  14. MUCINEX [Concomitant]
     Dates: start: 20081124
  15. FUROSEMIDE [Concomitant]
     Dates: start: 20081204
  16. POTASSIUM CHLORIDE [Concomitant]
     Dates: start: 20081204
  17. ADVAIR HFA [Concomitant]
     Dates: start: 20090114

REACTIONS (3)
  - HAEMATURIA [None]
  - PNEUMONIA [None]
  - TRANSFUSION REACTION [None]
